FAERS Safety Report 20559871 (Version 1)
Quarter: 2022Q1

REPORT INFORMATION
  Report Type: Spontaneous
  Country: KR (occurrence: KR)
  Receive Date: 20220307
  Receipt Date: 20220307
  Transmission Date: 20220424
  Serious: Yes (Hospitalization, Disabling)
  Sender: FDA-Public Use
  Company Number: KR-NOVARTISPH-NVSC2022KR051943

PATIENT
  Age: 31 Year
  Sex: Female

DRUGS (1)
  1. PARLODEL [Suspect]
     Active Substance: BROMOCRIPTINE MESYLATE
     Indication: Suppressed lactation
     Dosage: 1 DOSAGE FORM, BID (1 TABLET OF PARLODEL EACH IN THE MORNING AND AFTERNOON, A TOTAL OF 2 TABLETS)
     Route: 048
     Dates: start: 20220222

REACTIONS (2)
  - Vomiting [Unknown]
  - Gait inability [Not Recovered/Not Resolved]
